FAERS Safety Report 7590468-4 (Version None)
Quarter: 2011Q3

REPORT INFORMATION
  Report Type: 
  Country: None (occurrence: None)
  Receive Date: 20110705
  Receipt Date: 20110628
  Transmission Date: 20111222
  Serious: Yes (Hospitalization)
  Sender: FDA-Public Use
  Company Number: FR-PFIZER INC-2011143212

PATIENT
  Age: 77 Year
  Sex: Male

DRUGS (10)
  1. LASIX [Suspect]
     Dosage: 20 MG, 1X/DAY
     Route: 048
     Dates: end: 20110414
  2. RABEPRAZOLE SODIUM [Concomitant]
     Dosage: 1 DF, 10 MG,  1X/DAY
     Route: 048
  3. CORDARONE [Suspect]
     Dosage: 1 DF, 200MG, 5 DAYS OUT OF 7
     Route: 048
     Dates: end: 20110414
  4. ATORVASTATIN CALCIUM [Suspect]
     Dosage: 10 MG, 1X/DAY
     Route: 048
     Dates: end: 20110414
  5. CLINDAMYCIN HCL [Concomitant]
     Dosage: 600 MG, 3X/DAY
     Route: 048
  6. PLAVIX [Concomitant]
     Dosage: 1 DF, 75 MG, 1X/DAY
     Route: 048
  7. TASIGNA [Suspect]
     Indication: CHRONIC MYELOID LEUKAEMIA
     Dosage: 400 MG, 2X/DAY
     Route: 048
     Dates: end: 20110414
  8. FUCIDINE CAP [Concomitant]
     Dosage: 250 MG, UNK
     Route: 048
  9. AMLODIPINE [Concomitant]
     Dosage: 1 DF, 10 MG, 1X/DAY
     Route: 048
  10. ATACAND [Suspect]
     Dosage: 16 MG, 1X/DAY
     Route: 048
     Dates: end: 20110414

REACTIONS (3)
  - RENAL FAILURE ACUTE [None]
  - BRADYARRHYTHMIA [None]
  - HYPERKALAEMIA [None]
